FAERS Safety Report 9241909 (Version 2)
Quarter: 2013Q2

REPORT INFORMATION
  Report Type: Spontaneous
  Country: US (occurrence: US)
  Receive Date: 20130419
  Receipt Date: 20130422
  Transmission Date: 20140414
  Serious: Yes (Hospitalization, Other)
  Sender: FDA-Public Use
  Company Number: US-ELI_LILLY_AND_COMPANY-US201304003775

PATIENT
  Sex: Male

DRUGS (4)
  1. FORTEO [Suspect]
     Indication: OSTEOPOROSIS
     Dosage: UNK UNK, QD
     Dates: start: 201211
  2. CLONIDINE [Concomitant]
     Indication: ANXIETY
     Dosage: UNK
  3. VITAMIN D [Concomitant]
     Dosage: UNK
  4. CALCIUM [Concomitant]
     Dosage: UNK

REACTIONS (8)
  - Loss of consciousness [Unknown]
  - Hypotension [Unknown]
  - Dehydration [Unknown]
  - Bronchitis [Unknown]
  - Cardiac discomfort [Unknown]
  - Blood glucose increased [Unknown]
  - Arthralgia [Recovered/Resolved]
  - Spinal fracture [Unknown]
